FAERS Safety Report 13552925 (Version 1)
Quarter: 2017Q2

REPORT INFORMATION
  Report Type: Spontaneous
  Country: US (occurrence: US)
  Receive Date: 20170517
  Receipt Date: 20170517
  Transmission Date: 20170830
  Serious: No
  Sender: FDA-Public Use
  Company Number: US-PFIZER INC-2017206335

PATIENT
  Age: 62 Year
  Sex: Male
  Weight: 90.7 kg

DRUGS (4)
  1. EUCRISA [Suspect]
     Active Substance: CRISABOROLE
     Indication: PRURITUS
  2. EUCRISA [Suspect]
     Active Substance: CRISABOROLE
     Indication: URTICARIA
     Dosage: UNK
  3. EUCRISA [Suspect]
     Active Substance: CRISABOROLE
     Indication: SWELLING
  4. EUCRISA [Suspect]
     Active Substance: CRISABOROLE
     Indication: ERYTHEMA

REACTIONS (1)
  - Thermal burn [Unknown]
